FAERS Safety Report 21261510 (Version 1)
Quarter: 2022Q3

REPORT INFORMATION
  Report Type: Spontaneous
  Country: SI (occurrence: SI)
  Receive Date: 20220827
  Receipt Date: 20220827
  Transmission Date: 20221027
  Serious: Yes (Other)
  Sender: FDA-Public Use
  Company Number: SI-NOVARTISPH-NVSC2022SI191401

PATIENT
  Age: 65 Year
  Sex: Male

DRUGS (17)
  1. BEOVU [Suspect]
     Active Substance: BROLUCIZUMAB-DBLL
     Indication: Neovascular age-related macular degeneration
     Dosage: LEFT EYE
     Route: 065
     Dates: start: 20210423
  2. BEOVU [Suspect]
     Active Substance: BROLUCIZUMAB-DBLL
     Dosage: UNK
     Route: 065
     Dates: start: 20210521
  3. BEOVU [Suspect]
     Active Substance: BROLUCIZUMAB-DBLL
     Dosage: LEFT EYE
     Route: 065
     Dates: start: 20210618
  4. BEOVU [Suspect]
     Active Substance: BROLUCIZUMAB-DBLL
     Dosage: LEFT EYE
     Route: 065
     Dates: start: 20210813
  5. BEOVU [Suspect]
     Active Substance: BROLUCIZUMAB-DBLL
     Dosage: LEFT EYE
     Route: 065
     Dates: start: 20211008
  6. BEOVU [Suspect]
     Active Substance: BROLUCIZUMAB-DBLL
     Dosage: LEFT EYE
     Route: 065
     Dates: start: 20220325
  7. AFLIBERCEPT [Concomitant]
     Active Substance: AFLIBERCEPT
     Indication: Neovascular age-related macular degeneration
     Dosage: UNK
     Route: 065
  8. AFLIBERCEPT [Concomitant]
     Active Substance: AFLIBERCEPT
     Dosage: RIGHT EYE
     Route: 065
     Dates: start: 20210423
  9. AFLIBERCEPT [Concomitant]
     Active Substance: AFLIBERCEPT
     Dosage: UNK
     Route: 065
     Dates: start: 20210521
  10. AFLIBERCEPT [Concomitant]
     Active Substance: AFLIBERCEPT
     Dosage: RIGHT EYE
     Route: 065
     Dates: start: 20210618
  11. AFLIBERCEPT [Concomitant]
     Active Substance: AFLIBERCEPT
     Dosage: RIGHT EYE
     Route: 065
     Dates: start: 20210813
  12. AFLIBERCEPT [Concomitant]
     Active Substance: AFLIBERCEPT
     Dosage: UNK
     Route: 065
     Dates: start: 20211008
  13. AFLIBERCEPT [Concomitant]
     Active Substance: AFLIBERCEPT
     Dosage: BOTH EYES
     Route: 065
     Dates: start: 202205
  14. AFLIBERCEPT [Concomitant]
     Active Substance: AFLIBERCEPT
     Dosage: RIGHT EYE
     Route: 065
     Dates: start: 20220506
  15. AFLIBERCEPT [Concomitant]
     Active Substance: AFLIBERCEPT
     Dosage: BOTH EYES
     Route: 065
     Dates: start: 20220620
  16. AFLIBERCEPT [Concomitant]
     Active Substance: AFLIBERCEPT
     Dosage: BOTH EYES
     Route: 065
     Dates: start: 20220715
  17. AFLIBERCEPT [Concomitant]
     Active Substance: AFLIBERCEPT
     Dosage: UNK
     Route: 065
     Dates: start: 20220818

REACTIONS (4)
  - Subretinal fluid [Unknown]
  - Visual acuity reduced [Unknown]
  - Ill-defined disorder [Unknown]
  - Drug ineffective [Unknown]

NARRATIVE: CASE EVENT DATE: 20211008
